FAERS Safety Report 7029101-9 (Version None)
Quarter: 2010Q4

REPORT INFORMATION
  Report Type: 
  Country: None (occurrence: None)
  Receive Date: 20101005
  Receipt Date: 20100927
  Transmission Date: 20110411
  Serious: Yes (Hospitalization)
  Sender: FDA-Public Use
  Company Number: R0012204A

PATIENT
  Sex: Female

DRUGS (5)
  1. PANDEMRIX H1N1 [Suspect]
     Dosage: 3.75MCG PER DAY
     Route: 030
     Dates: start: 20091118, end: 20091118
  2. METHOTREXATE [Suspect]
     Indication: RHEUMATOID ARTHRITIS
     Dosage: 7.5MG PER DAY
     Route: 048
     Dates: start: 20020203
  3. AMPICILLIN SODIUM/SULBACTAM SODIUM [Suspect]
     Dosage: 2025MG PER DAY
     Route: 048
     Dates: start: 20100302, end: 20100310
  4. INFLUENZA VACCINE [Concomitant]
     Dates: start: 20081015, end: 20081015
  5. INFLUENZA VACCINE [Concomitant]
     Dates: start: 20091006, end: 20091006

REACTIONS (2)
  - MALAISE [None]
  - NAUSEA [None]
